FAERS Safety Report 4738103-4 (Version None)
Quarter: 2005Q3

REPORT INFORMATION
  Report Type: 
  Country: None (occurrence: None)
  Receive Date: 20050805
  Receipt Date: 20050805
  Transmission Date: 20060218
  Serious: Yes (Hospitalization)
  Sender: FDA-Public Use
  Company Number: None

PATIENT
  Age: 73 Year
  Sex: Female
  Weight: 77.6 kg

DRUGS (2)
  1. INFED [Suspect]
     Indication: ANAEMIA
     Dosage: TEST DOSE IV
     Route: 042
     Dates: start: 20040202
  2. INFED [Suspect]
     Indication: ASTHENIA
     Dosage: TEST DOSE IV
     Route: 042
     Dates: start: 20040202

REACTIONS (1)
  - DEPRESSED LEVEL OF CONSCIOUSNESS [None]
